FAERS Safety Report 19110805 (Version 2)
Quarter: 2021Q2

REPORT INFORMATION
  Report Type: Spontaneous
  Country: US (occurrence: US)
  Receive Date: 20210408
  Receipt Date: 20210504
  Transmission Date: 20210717
  Serious: No
  Sender: FDA-Public Use
  Company Number: US-PFIZER INC-2021193436

PATIENT
  Age: 51 Year
  Sex: Female

DRUGS (5)
  1. COLACE [Concomitant]
     Active Substance: DOCUSATE SODIUM
     Dosage: UNK, DAILY
  2. IBRANCE [Suspect]
     Active Substance: PALBOCICLIB
     Indication: SOFT TISSUE NEOPLASM
  3. IBRANCE [Suspect]
     Active Substance: PALBOCICLIB
     Indication: CONNECTIVE TISSUE NEOPLASM
     Dosage: 125 MG
     Dates: start: 20210119, end: 20210405
  4. MIRALAX [Concomitant]
     Active Substance: POLYETHYLENE GLYCOL 3350
     Dosage: UNK, DAILY (EVERY DAY)
  5. DULCOLAX (BISACODYL) [Concomitant]
     Active Substance: BISACODYL
     Dosage: UNK, DAILY

REACTIONS (5)
  - Off label use [Unknown]
  - Headache [Unknown]
  - White blood cell count decreased [Unknown]
  - Constipation [Unknown]
  - Stomatitis [Unknown]

NARRATIVE: CASE EVENT DATE: 2021
